FAERS Safety Report 11067554 (Version 1)
Quarter: 2015Q2

REPORT INFORMATION
  Report Type: Spontaneous
  Country: US (occurrence: None)
  Receive Date: 20150424
  Receipt Date: 20150424
  Transmission Date: 20150821
  Serious: Yes (Life-Threatening, Hospitalization)
  Sender: FDA-Public Use
  Company Number: None

PATIENT
  Age: 68 Year
  Sex: Male
  Weight: 68.2 kg

DRUGS (1)
  1. ALBUMIN,IODINATED SERUM, I-125/IODINE,I-125 [Suspect]
     Active Substance: IODINATED I-125 SERUM ALBUMIN
     Indication: IMAGING PROCEDURE
     Dosage: UNKNOWN ML  ONCE  IV
     Route: 042
     Dates: start: 20150414, end: 20150414

REACTIONS (11)
  - Hyperhidrosis [None]
  - Seizure [None]
  - Blood pressure systolic increased [None]
  - Blood pressure decreased [None]
  - Tachypnoea [None]
  - Hypoxia [None]
  - Hypotension [None]
  - Respiratory depression [None]
  - Dizziness [None]
  - Mental status changes [None]
  - Heart rate increased [None]

NARRATIVE: CASE EVENT DATE: 20150414
